FAERS Safety Report 5030439-5 (Version None)
Quarter: 2006Q2

REPORT INFORMATION
  Report Type: 
  Country: None (occurrence: None)
  Receive Date: 20060615
  Receipt Date: 20060602
  Transmission Date: 20061013
  Serious: Yes (Other)
  Sender: FDA-Public Use
  Company Number: 2006-BP-06263RO

PATIENT
  Age: 79 Year
  Sex: Male

DRUGS (1)
  1. METHOTREXATE [Suspect]
     Indication: RHEUMATOID ARTHRITIS
     Dosage: 5 TO 12.5 MG PER WEEK (1 IN 1 WK)
     Dates: start: 19900101, end: 20021001

REACTIONS (5)
  - CARCINOEMBRYONIC ANTIGEN INCREASED [None]
  - COLON CANCER [None]
  - COLONIC POLYP [None]
  - METASTASES TO LIVER [None]
  - METASTASES TO LYMPH NODES [None]
